FAERS Safety Report 4732380-1 (Version None)
Quarter: 2005Q3

REPORT INFORMATION
  Report Type: 
  Country: None (occurrence: None)
  Receive Date: 20050801
  Receipt Date: 20050722
  Transmission Date: 20060218
  Serious: Yes (Death, Hospitalization, Other)
  Sender: FDA-Public Use
  Company Number: 2005-07-1525

PATIENT
  Age: 80 Year
  Sex: Male

DRUGS (5)
  1. FLUTAMIDE [Suspect]
     Indication: PROSTATE CANCER
     Dosage: 250 MG QD ORAL
     Route: 048
     Dates: start: 20000929, end: 20040304
  2. LEUPROLIDE ACETATE [Concomitant]
  3. SENNA LEAF [Concomitant]
  4. CIPROFLOXACIN HYDROCHLORIDE [Concomitant]
  5. LIDOCAINE [Concomitant]

REACTIONS (6)
  - ALANINE AMINOTRANSFERASE INCREASED [None]
  - ASPARTATE AMINOTRANSFERASE INCREASED [None]
  - DISSEMINATED INTRAVASCULAR COAGULATION [None]
  - INTERSTITIAL LUNG DISEASE [None]
  - MULTI-ORGAN FAILURE [None]
  - RESPIRATORY FAILURE [None]
